FAERS Safety Report 9645420 (Version 1)
Quarter: 2013Q4

REPORT INFORMATION
  Report Type: Spontaneous
  Country: DE (occurrence: DE)
  Receive Date: 20131025
  Receipt Date: 20131025
  Transmission Date: 20140711
  Serious: Yes (Other)
  Sender: FDA-Public Use
  Company Number: DE-TEVA-439917USA

PATIENT
  Sex: Male

DRUGS (2)
  1. BENDAMUSTINE [Suspect]
     Indication: PRODUCT USED FOR UNKNOWN INDICATION
     Route: 042
     Dates: start: 20100316, end: 20100813
  2. RITUXIMAB [Concomitant]
     Route: 042

REACTIONS (3)
  - Chylothorax [Recovered/Resolved]
  - Pleural effusion [Unknown]
  - Eosinophilia [Recovered/Resolved]
